FAERS Safety Report 14166998 (Version 2)
Quarter: 2017Q4

REPORT INFORMATION
  Report Type: Spontaneous
  Country: JP (occurrence: JP)
  Receive Date: 20171107
  Receipt Date: 20171229
  Transmission Date: 20180321
  Serious: Yes (Death, Hospitalization, Other)
  Sender: FDA-Public Use
  Company Number: JP-009507513-1705JPN001590J

PATIENT
  Age: 63 Year
  Sex: Male
  Weight: 56 kg

DRUGS (1)
  1. KEYTRUDA [Suspect]
     Active Substance: PEMBROLIZUMAB
     Indication: LUNG ADENOCARCINOMA
     Dosage: 200 MG, Q3W
     Route: 041
     Dates: start: 20170510, end: 20170712

REACTIONS (5)
  - Pyrexia [Recovering/Resolving]
  - Urticaria [Unknown]
  - Erythema multiforme [Recovering/Resolving]
  - Death [Fatal]
  - Urticaria [Recovering/Resolving]

NARRATIVE: CASE EVENT DATE: 201705
